FAERS Safety Report 8052558-1 (Version None)
Quarter: 2012Q1

REPORT INFORMATION
  Report Type: 
  Country: None (occurrence: None)
  Receive Date: 20120118
  Receipt Date: 20120109
  Transmission Date: 20120608
  Serious: Yes (Hospitalization, Other)
  Sender: FDA-Public Use
  Company Number: US-BAYER-2011-038349

PATIENT
  Age: 32 Year
  Sex: Female
  Weight: 154 kg

DRUGS (9)
  1. HUMIBID DM [Concomitant]
     Route: 048
  2. HYDROCODONE BITARTRATE AND ACETAMINOPHEN [Concomitant]
     Route: 048
  3. YASMIN [Suspect]
     Indication: ACNE
  4. AMBIEN [Concomitant]
     Dosage: 10 MG, UNK
     Route: 048
  5. TUSSIONEX [Concomitant]
     Route: 048
  6. YASMIN [Suspect]
     Indication: ORAL CONTRACEPTION
     Dosage: UNK
     Dates: start: 20030101, end: 20040101
  7. YASMIN [Suspect]
     Indication: PREMENSTRUAL SYNDROME
  8. ZITHROMAX [Concomitant]
     Route: 048
  9. PROMETHAZINE [Concomitant]
     Route: 048

REACTIONS (8)
  - GALLBLADDER INJURY [None]
  - INJURY [None]
  - ANHEDONIA [None]
  - QUALITY OF LIFE DECREASED [None]
  - PAIN [None]
  - DEEP VEIN THROMBOSIS [None]
  - ANXIETY [None]
  - FEAR [None]
